FAERS Safety Report 4745784-8 (Version None)
Quarter: 2005Q3

REPORT INFORMATION
  Report Type: 
  Country: None (occurrence: None)
  Receive Date: 20050816
  Receipt Date: 20050203
  Transmission Date: 20060218
  Serious: No
  Sender: FDA-Public Use
  Company Number: US-BRISTOL-MYERS SQUIBB COMPANY-12848818

PATIENT
  Sex: Female
  Weight: 73 kg

DRUGS (3)
  1. LAC-HYDRIN [Suspect]
     Indication: ICHTHYOSIS
     Route: 061
  2. HUMULIN 70/30 [Concomitant]
  3. GLUCOPHAGE [Concomitant]

REACTIONS (1)
  - DRUG INEFFECTIVE [None]
